FAERS Safety Report 6162542-0 (Version None)
Quarter: 2009Q2

REPORT INFORMATION
  Report Type: 
  Country: None (occurrence: None)
  Receive Date: 20090421
  Receipt Date: 20090410
  Transmission Date: 20091009
  Serious: Yes (Hospitalization)
  Sender: FDA-Public Use
  Company Number: US-BAXTER-2009BH006126

PATIENT
  Age: 51 Year
  Sex: Female
  Weight: 78 kg

DRUGS (15)
  1. DIANEAL [Suspect]
     Indication: PERITONEAL DIALYSIS
     Route: 033
     Dates: start: 20090228
  2. DIANEAL [Suspect]
     Indication: PERITONEAL DIALYSIS
     Route: 033
     Dates: start: 20090228
  3. CALCIUM ACETATE [Concomitant]
     Indication: DRUG USE FOR UNKNOWN INDICATION
     Route: 065
  4. PROCRIT [Concomitant]
     Indication: RENAL DISORDER
     Route: 065
  5. ZEMPLAR [Concomitant]
     Indication: PARATHYROID DISORDER
     Route: 065
  6. CLONIDINE [Concomitant]
     Indication: DRUG USE FOR UNKNOWN INDICATION
     Route: 065
  7. AMITRIPTLINE HYDROCHLORIDE TAB [Concomitant]
     Indication: SLEEP DISORDER
     Route: 065
  8. RENAGEL [Concomitant]
     Indication: DRUG USE FOR UNKNOWN INDICATION
     Route: 065
  9. METHADONE HCL [Concomitant]
     Indication: DRUG USE FOR UNKNOWN INDICATION
     Route: 065
  10. FOLIC ACID [Concomitant]
     Indication: DRUG USE FOR UNKNOWN INDICATION
     Route: 065
  11. HYDRALAZINE HCL [Concomitant]
     Indication: HYPERTENSION
     Route: 065
  12. WARFARIN SODIUM [Concomitant]
     Indication: FISTULA
     Route: 065
  13. AMLODIPINE [Concomitant]
     Indication: HYPERTENSION
     Route: 065
  14. STOOL SOFTENER [Concomitant]
     Indication: DRUG USE FOR UNKNOWN INDICATION
     Route: 065
  15. RENAL MULTIVITAMIN [Concomitant]
     Indication: DRUG USE FOR UNKNOWN INDICATION
     Route: 065

REACTIONS (5)
  - ABDOMINAL PAIN [None]
  - DYSPNOEA [None]
  - FLUID OVERLOAD [None]
  - HYPERKALAEMIA [None]
  - TREATMENT NONCOMPLIANCE [None]
